FAERS Safety Report 10243757 (Version 1)
Quarter: 2014Q2

REPORT INFORMATION
  Report Type: Spontaneous
  Country: DE (occurrence: None)
  Receive Date: 20140616
  Receipt Date: 20140616
  Transmission Date: 20141212
  Serious: Yes (Hospitalization)
  Sender: FDA-Public Use
  Company Number: None

PATIENT
  Age: 51 Year
  Sex: Female
  Weight: 64 kg

DRUGS (6)
  1. PEGINTRON [Suspect]
     Indication: HEPATITIS C
     Route: 058
     Dates: start: 20140309, end: 20140320
  2. RIBAVIRIN [Suspect]
     Indication: HEPATITIS C
     Dosage: AS DIVIDED DOSE
     Route: 048
     Dates: start: 20140309
  3. L-THYROXIN [Concomitant]
  4. HCT [Concomitant]
  5. CETIRIZIN [Concomitant]
  6. LISIHEXAL [Concomitant]

REACTIONS (1)
  - Hypokalaemia [None]
